FAERS Safety Report 16232484 (Version 1)
Quarter: 2019Q2

REPORT INFORMATION
  Report Type: Spontaneous
  Country: US (occurrence: US)
  Receive Date: 20190424
  Receipt Date: 20190424
  Transmission Date: 20190711
  Serious: No
  Sender: FDA-Public Use
  Company Number: US-JNJFOC-20190341181

PATIENT
  Age: 70 Year
  Sex: Female

DRUGS (2)
  1. TRAMADOL. [Concomitant]
     Active Substance: TRAMADOL
     Indication: PRODUCT USED FOR UNKNOWN INDICATION
     Route: 065
  2. TYLENOL EXTRA STRENGTH [Suspect]
     Active Substance: ACETAMINOPHEN
     Indication: BACK PAIN
     Dosage: 1 CAPLET EVERY FEW HOURS, NOT MORE THAN 4-6 IN A DAY. EVERY FEW HOURS AS NEEDED
     Route: 048

REACTIONS (4)
  - Product use in unapproved indication [Unknown]
  - Expired product administered [Unknown]
  - Off label use [Unknown]
  - Therapeutic response unexpected [Unknown]
